FAERS Safety Report 19481464 (Version 1)
Quarter: 2021Q2

REPORT INFORMATION
  Report Type: Spontaneous
  Country: US (occurrence: US)
  Receive Date: 20210630
  Receipt Date: 20210630
  Transmission Date: 20210717
  Serious: Yes (Hospitalization)
  Sender: FDA-Public Use
  Company Number: None

PATIENT
  Sex: Male

DRUGS (6)
  1. AMLODIPINE [Suspect]
     Active Substance: AMLODIPINE BESYLATE
  2. OMERPRAZOLE [Suspect]
     Active Substance: OMEPRAZOLE
  3. ZORTRESS [Suspect]
     Active Substance: EVEROLIMUS
     Indication: LIVER TRANSPLANT
     Route: 048
     Dates: start: 20210202
  4. PRAVASTATIN. [Suspect]
     Active Substance: PRAVASTATIN
  5. ESCITALOPRAM [Suspect]
     Active Substance: ESCITALOPRAM OXALATE
  6. ZAFIRLUKAST. [Suspect]
     Active Substance: ZAFIRLUKAST

REACTIONS (1)
  - Fluid retention [None]
